FAERS Safety Report 4435199-4 (Version None)
Quarter: 2004Q3

REPORT INFORMATION
  Report Type: 
  Country: None (occurrence: None)
  Receive Date: 20040827
  Receipt Date: 20040714
  Transmission Date: 20050211
  Serious: Yes (Hospitalization)
  Sender: FDA-Public Use
  Company Number: PL-BRISTOL-MYERS SQUIBB COMPANY-12639340

PATIENT
  Age: 46 Year
  Sex: Female

DRUGS (8)
  1. CARBOPLATIN [Suspect]
     Indication: OVARIAN CANCER
     Route: 042
     Dates: start: 20031104, end: 20031104
  2. PACLITAXEL [Suspect]
     Indication: OVARIAN CANCER
     Route: 042
     Dates: start: 20031104, end: 20031104
  3. DEXAMETHASONE [Concomitant]
     Dates: start: 20031103, end: 20031104
  4. CLEMASTINE [Concomitant]
     Dates: start: 20031103, end: 20031104
  5. CIMETIDINE [Concomitant]
     Dates: start: 20031103, end: 20031104
  6. ZOFRAN [Concomitant]
     Dates: start: 20031103, end: 20031104
  7. LORETAM [Concomitant]
     Dates: start: 20031104, end: 20031104
  8. METOCLOPRAMIDE [Concomitant]
     Dates: start: 20031103, end: 20031104

REACTIONS (1)
  - RENAL COLIC [None]
